FAERS Safety Report 13602279 (Version 1)
Quarter: 2017Q2

REPORT INFORMATION
  Report Type: Spontaneous
  Country: US (occurrence: US)
  Receive Date: 20170601
  Receipt Date: 20170601
  Transmission Date: 20170830
  Serious: No
  Sender: FDA-Public Use
  Company Number: US-009507513-1705USA015034

PATIENT
  Sex: Male

DRUGS (8)
  1. INTRON A [Suspect]
     Active Substance: INTERFERON ALFA-2B
     Indication: HAEMOLYTIC ANAEMIA
     Dosage: STRENGTH: 25 MU 2.5 ML MDV, 0.5 ML, QW
     Route: 058
     Dates: start: 20100929
  2. PLAVIX [Concomitant]
     Active Substance: CLOPIDOGREL BISULFATE
  3. METOPROLOL SUCCINATE. [Concomitant]
     Active Substance: METOPROLOL SUCCINATE
  4. ELIQUIS [Concomitant]
     Active Substance: APIXABAN
  5. KETOCONAZOLE. [Concomitant]
     Active Substance: KETOCONAZOLE
  6. ZOCOR [Concomitant]
     Active Substance: SIMVASTATIN
  7. CLOPIDOGREL [Concomitant]
     Active Substance: CLOPIDOGREL BISULFATE
  8. PRINIVIL [Concomitant]
     Active Substance: LISINOPRIL

REACTIONS (2)
  - Pain [Not Recovered/Not Resolved]
  - Product use in unapproved indication [Unknown]
